FAERS Safety Report 5588954-1 (Version None)
Quarter: 2007Q4

REPORT INFORMATION
  Report Type: 
  Country: None (occurrence: None)
  Receive Date: 20071211
  Receipt Date: 20071030
  Transmission Date: 20080405
  Serious: No
  Sender: FDA-Public Use
  Company Number: 002#2#2007-00312

PATIENT
  Age: 52 Year
  Sex: Female

DRUGS (6)
  1. NEUPRO [Suspect]
     Dosage: SEE IMAGE
     Route: 062
     Dates: start: 20070101, end: 20070101
  2. NEUPRO [Suspect]
     Dosage: SEE IMAGE
     Route: 062
     Dates: start: 20070101, end: 20070101
  3. NEUPRO [Suspect]
     Dosage: SEE IMAGE
     Route: 062
     Dates: start: 20070101, end: 20070101
  4. NEUPRO [Suspect]
     Dosage: SEE IMAGE
     Route: 062
     Dates: start: 20070101
  5. SINEMET [Concomitant]
  6. TASMAR [Concomitant]

REACTIONS (3)
  - APPLICATION SITE REACTION [None]
  - APPLICATION SITE SCAR [None]
  - HALLUCINATION [None]
